FAERS Safety Report 10190918 (Version 2)
Quarter: 2014Q2

REPORT INFORMATION
  Report Type: Spontaneous
  Country: FR (occurrence: FR)
  Receive Date: 20140523
  Receipt Date: 20140630
  Transmission Date: 20141212
  Serious: No
  Sender: FDA-Public Use
  Company Number: FR-ROCHE-1406410

PATIENT
  Age: 64 Year
  Sex: Female
  Weight: 60 kg

DRUGS (7)
  1. MABTHERA [Suspect]
     Indication: RHEUMATOID ARTHRITIS
     Route: 042
     Dates: start: 200905, end: 201307
  2. METHOTREXATE [Concomitant]
     Indication: RHEUMATOID ARTHRITIS
     Route: 048
     Dates: start: 200507
  3. CORTANCYL [Concomitant]
     Indication: RHEUMATOID ARTHRITIS
     Route: 048
     Dates: start: 2002
  4. PARACETAMOL [Concomitant]
     Indication: RHEUMATOID ARTHRITIS
     Dosage: DOSE= 1 TO 3G DAILY
     Route: 048
     Dates: start: 2002
  5. ZALDIAR [Concomitant]
     Indication: RHEUMATOID ARTHRITIS
     Dosage: DOSE= 1 TO 3 DF DAILY,
     Route: 048
     Dates: start: 2013
  6. OROCAL D3 [Concomitant]
     Route: 065
     Dates: start: 201404
  7. ACLASTA [Concomitant]
     Route: 065
     Dates: start: 201404

REACTIONS (1)
  - Pericarditis [Not Recovered/Not Resolved]
